FAERS Safety Report 9715622 (Version 3)
Quarter: 2016Q2

REPORT INFORMATION
  Report Type: Report from Study
  Country: US (occurrence: US)
  Receive Date: 20131127
  Receipt Date: 20160623
  Transmission Date: 20160815
  Serious: Yes (Hospitalization, Other)
  Sender: FDA-Public Use
  Company Number: US-BRISTOL-MYERS SQUIBB COMPANY-19835461

PATIENT
  Age: 49 Year
  Sex: Male
  Weight: 106.1 kg

DRUGS (1)
  1. IPILIMUMAB [Suspect]
     Active Substance: IPILIMUMAB
     Indication: MALIGNANT MELANOMA
     Dosage: LAST DOSE:23OCT13,3MG/KGIV OVER 90 MIN, Q3WX4 DOSES  CYCLE3 ON 23/10/13,CYCLE4.  318.3MG
     Route: 042
     Dates: start: 20130821

REACTIONS (4)
  - Herpes zoster [Not Recovered/Not Resolved]
  - Rash [Not Recovered/Not Resolved]
  - Peripheral nerve infection [Not Recovered/Not Resolved]
  - Acute febrile neutrophilic dermatosis [Unknown]

NARRATIVE: CASE EVENT DATE: 20131111
